FAERS Safety Report 7180047-5 (Version None)
Quarter: 2010Q4

REPORT INFORMATION
  Report Type: 
  Country: None (occurrence: None)
  Receive Date: 20101221
  Receipt Date: 20100913
  Transmission Date: 20110411
  Serious: Yes (Death, Hospitalization)
  Sender: FDA-Public Use
  Company Number: JP-BAYER-201014238BYL

PATIENT
  Sex: Female
  Weight: 47 kg

DRUGS (19)
  1. NEXAVAR [Suspect]
     Dosage: 400 MG (DAILY DOSE), , ORAL
     Route: 048
     Dates: start: 20100624
  2. NEXAVAR [Suspect]
     Route: 048
     Dates: start: 20100722, end: 20100816
  3. UREPEARL [Concomitant]
     Indication: PROPHYLAXIS
     Route: 061
     Dates: start: 20100625
  4. LIVACT [Concomitant]
     Dosage: 3 DF (DAILY DOSE), , ORAL
     Route: 048
     Dates: start: 20091228, end: 20100807
  5. URSO 250 [Concomitant]
     Indication: PROPHYLAXIS
     Dosage: 600 MG (DAILY DOSE), , ORAL
     Route: 048
     Dates: start: 20091228
  6. GASCON [Concomitant]
     Dosage: 120 MG (DAILY DOSE), , ORAL
     Route: 048
     Dates: start: 20091228
  7. GLYCYRON [Concomitant]
     Indication: PROPHYLAXIS
     Dosage: 6 DF (DAILY DOSE), , ORAL
     Route: 048
     Dates: start: 20091228
  8. PARIET [Concomitant]
     Indication: REFLUX OESOPHAGITIS
     Dosage: 10 MG (DAILY DOSE), , ORAL
     Route: 048
     Dates: start: 20091228
  9. RIKKUNSHITO, NOS [Concomitant]
     Dosage: 7.5 G (DAILY DOSE), , ORAL
     Route: 048
     Dates: start: 20091228
  10. LASIX [Concomitant]
     Indication: ASCITES
     Dosage: 40 MG (DAILY DOSE), , ORAL
     Route: 048
     Dates: start: 20100220, end: 20100625
  11. LASIX [Concomitant]
     Dosage: 20 MG (DAILY DOSE), , ORAL
     Route: 048
     Dates: start: 20100626, end: 20100710
  12. LASIX [Concomitant]
     Dosage: 20 MG (DAILY DOSE), , ORAL
     Route: 048
     Dates: start: 20100726
  13. ALDACTONE [Concomitant]
     Dosage: 25 MG (DAILY DOSE), , ORAL
     Route: 048
     Dates: start: 20100703, end: 20100710
  14. LAC B [Concomitant]
     Dosage: 3 G (DAILY DOSE), , ORAL
     Route: 048
     Dates: start: 20100709, end: 20100728
  15. GASMOTIN [Concomitant]
     Dosage: 15 MG (DAILY DOSE), , ORAL
     Route: 048
     Dates: start: 20100709
  16. KINDAVATE [Concomitant]
     Route: 061
  17. PURSENNID [Concomitant]
     Indication: CONSTIPATION
     Dosage: 24 MG (DAILY DOSE), , ORAL
     Route: 048
     Dates: start: 20100720
  18. AMINOLEBAN EN [Concomitant]
     Indication: HYPERAMMONAEMIA
     Dosage: 150 G (DAILY DOSE), , ORAL
     Route: 048
     Dates: start: 20100807
  19. LOXONIN [Concomitant]
     Dosage: 100 MG (DAILY DOSE), , TRANSDERMAL
     Route: 062
     Dates: start: 20100721

REACTIONS (5)
  - ABDOMINAL DISTENSION [None]
  - ABDOMINAL PAIN [None]
  - HEPATIC FAILURE [None]
  - RASH [None]
  - TUMOUR RUPTURE [None]
